FAERS Safety Report 12410847 (Version 1)
Quarter: 2016Q2

REPORT INFORMATION
  Report Type: Spontaneous
  Country: US (occurrence: None)
  Receive Date: 20160526
  Receipt Date: 20160526
  Transmission Date: 20160815
  Serious: No
  Sender: FDA-Public Use
  Company Number: None

PATIENT
  Age: 64 Year
  Sex: Female

DRUGS (26)
  1. IBUPROFEN TAB 200MG [Concomitant]
  2. BAYER CONTOR TES NEXT [Concomitant]
  3. TEMAZEPAM CAP [Concomitant]
  4. FISH OIL [Concomitant]
     Active Substance: FISH OIL
  5. DULCOLAX NOS [Concomitant]
     Active Substance: BISACODYL OR DOCUSATE SODIUM
  6. CALCIUM CARB SUS [Concomitant]
  7. VITAMIN C [Concomitant]
     Active Substance: ASCORBIC ACID
  8. CITALOPRAM TAB 20MG [Concomitant]
  9. VITAMIN D3 CAP [Concomitant]
  10. LETROZOLE TAB 25MG [Concomitant]
  11. LORAZEPAM TAB 0.5MG [Concomitant]
  12. MAGNESIUM TAB 250MG [Concomitant]
  13. FLONASE [Concomitant]
     Active Substance: FLUTICASONE PROPIONATE
  14. DOCUSATE SOD CAP 100MG [Concomitant]
  15. DILTIAZEM CAP [Concomitant]
  16. SUPER CAP COMPLEX [Concomitant]
  17. MULTI-VITAMN TAB [Concomitant]
  18. HYDROCHLOROT  CAP [Concomitant]
  19. VITAMIN E [Concomitant]
     Active Substance: .ALPHA.-TOCOPHEROL
  20. ALREX SUS 0.2% [Concomitant]
  21. LANTUS !NJ SOLOSTAR [Concomitant]
  22. IBRANCE [Suspect]
     Active Substance: PALBOCICLIB
     Indication: BREAST CANCER
     Dosage: 125MG QD DAYS 1-21 ORAL
     Route: 048
     Dates: start: 20160329
  23. BD PEN NEEDL MS [Concomitant]
  24. BAYER MICRLT MIS LANCETS [Concomitant]
  25. MELATONIN CAP [Concomitant]
  26. LOSARTAN. [Concomitant]
     Active Substance: LOSARTAN

REACTIONS (2)
  - Fatigue [None]
  - Blood glucose increased [None]

NARRATIVE: CASE EVENT DATE: 201605
